FAERS Safety Report 11734076 (Version 2)
Quarter: 2015Q4

REPORT INFORMATION
  Report Type: Spontaneous
  Country: JP (occurrence: JP)
  Receive Date: 20151113
  Receipt Date: 20151117
  Transmission Date: 20160304
  Serious: Yes (Hospitalization)
  Sender: FDA-Public Use
  Company Number: JP-JNJFOC-20151105471

PATIENT
  Age: 30 Year
  Sex: Female

DRUGS (1)
  1. XEPLION [Suspect]
     Active Substance: PALIPERIDONE PALMITATE
     Indication: SCHIZOPHRENIA
     Route: 030
     Dates: start: 201509, end: 201509

REACTIONS (11)
  - Hallucination, auditory [Unknown]
  - Amimia [Unknown]
  - Bradyphrenia [Unknown]
  - Psychiatric symptom [Unknown]
  - Staring [Unknown]
  - Dyskinesia [Unknown]
  - Decreased appetite [Unknown]
  - Epilepsy [Unknown]
  - Hallucination [Unknown]
  - Feeling abnormal [Unknown]
  - Hearing impaired [Unknown]

NARRATIVE: CASE EVENT DATE: 2015
